FAERS Safety Report 8966995 (Version 1)
Quarter: 2012Q4

REPORT INFORMATION
  Report Type: 
  Country: US (occurrence: US)
  Receive Date: 20121214
  Receipt Date: 20121214
  Transmission Date: 20130627
  Serious: Yes (Other)
  Sender: FDA-Public Use
  Company Number: US-PFIZER INC-2012312867

PATIENT
  Sex: Female
  Weight: 67.12 kg

DRUGS (12)
  1. GLUCOTROL [Suspect]
     Indication: DIABETES
     Dosage: 10 mg, 2x/day
  2. GLUCOTROL [Suspect]
     Dosage: 10 mg, 2x/day
  3. GLIPIZIDE [Suspect]
     Indication: DIABETES
     Dosage: 10 mg, 2x/day
  4. GABAPENTIN [Suspect]
     Dosage: 400 mg, 4x/day
  5. CARVEDILOL [Suspect]
     Dosage: 6.25 mg, 2x/day
  6. PRAMIPEXOLE DIHYDROCHLORIDE [Suspect]
     Dosage: 1 mg, daily
  7. ASPIRIN [Suspect]
     Indication: DIABETES
     Dosage: 81 mg, daily
  8. AMLODIPINE BESILATE [Suspect]
     Dosage: UNK
  9. MULTIVITAMINS WITH MINERALS [Suspect]
     Dosage: 300 mg, UNK
  10. CALCIUM WITH VITAMIN D [Suspect]
     Indication: OSTEOPOROSIS
     Dosage: UNK, 4x/day
  11. COENZYME Q10 [Suspect]
     Dosage: 100 mg, 4x/day
  12. CRESTOR [Suspect]
     Dosage: 20 mg, daily

REACTIONS (4)
  - Amnesia [Unknown]
  - Insomnia [Unknown]
  - Pain [Unknown]
  - Fatigue [Unknown]
